FAERS Safety Report 24668234 (Version 1)
Quarter: 2024Q4

REPORT INFORMATION
  Report Type: Spontaneous
  Country: CN (occurrence: CN)
  Receive Date: 20241127
  Receipt Date: 20241127
  Transmission Date: 20250114
  Serious: Yes (Life-Threatening, Other)
  Sender: ROCHE
  Company Number: CN-ROCHE-10000139140

PATIENT
  Age: 72 Year
  Sex: Female
  Weight: 50 kg

DRUGS (2)
  1. RITUXIMAB [Suspect]
     Active Substance: RITUXIMAB
     Indication: Nephrotic syndrome
     Route: 042
     Dates: start: 20241109, end: 20241109
  2. RITUXIMAB [Suspect]
     Active Substance: RITUXIMAB
     Indication: Glomerulonephritis membranous

REACTIONS (10)
  - Chills [Recovering/Resolving]
  - Feeling cold [Unknown]
  - Altered state of consciousness [Unknown]
  - Tremor [Unknown]
  - Pyrexia [Unknown]
  - Pallor [Unknown]
  - Breath sounds abnormal [Unknown]
  - Blood pressure increased [Unknown]
  - Off label use [Unknown]
  - Unresponsive to stimuli [Unknown]

NARRATIVE: CASE EVENT DATE: 20241109
